FAERS Safety Report 21672505 (Version 1)
Quarter: 2022Q4

REPORT INFORMATION
  Report Type: Report from Study
  Country: US (occurrence: US)
  Receive Date: 20221202
  Receipt Date: 20221202
  Transmission Date: 20230113
  Serious: No
  Sender: FDA-Public Use
  Company Number: US-ABBVIE-4186441

PATIENT
  Sex: Male

DRUGS (17)
  1. SKYRIZI [Suspect]
     Active Substance: RISANKIZUMAB-RZAA
     Indication: Psoriatic arthropathy
     Dosage: FORM STRENGTH: 150 MILLIGRAM
     Route: 058
  2. ATORVASTATIN TAB 80MG [Concomitant]
     Indication: Product used for unknown indication
     Dosage: ATORVASTATIN TAB 80MG
  3. HYDROCHLOROT TAB 50MG [Concomitant]
     Indication: Product used for unknown indication
     Dosage: HYDROCHLOROT TAB 50MG
  4. METHOTREXATE [Concomitant]
     Active Substance: METHOTREXATE
     Indication: Product used for unknown indication
     Dosage: METHOTREXATE TAB 2.5MG
  5. AMLODIPINE B CAP 5-10MG [Concomitant]
     Indication: Product used for unknown indication
     Dosage: AMLODIPINE B CAP 5-10MG
  6. MELOXICAM [Concomitant]
     Active Substance: MELOXICAM
     Indication: Product used for unknown indication
     Dosage: MELOXICAM TAB 15MG
  7. MO NJARO SOP 5MG/0.5ML [Concomitant]
     Indication: Product used for unknown indication
  8. ROPINIROLE [Concomitant]
     Active Substance: ROPINIROLE
     Indication: Product used for unknown indication
     Dosage: ROPINIROLE H TAB 3MG
  9. METFORMIN HC TAB 1000MG [Concomitant]
     Indication: Product used for unknown indication
     Dosage: METFORMIN HC TAB 1000MG
  10. PIOGLITAZONE TAB 45MG [Concomitant]
     Indication: Product used for unknown indication
     Dosage: PIOGLITAZONE TAB 45MG
  11. TAMSULOSIN [Concomitant]
     Active Substance: TAMSULOSIN
     Indication: Product used for unknown indication
     Dosage: TAMSULOSIN H CAP 0.4MG
  12. FOLIC ACID TAB 800MCG [Concomitant]
     Indication: Product used for unknown indication
     Dosage: FOLIC ACID TAB 800MCG
  13. OMEPRAZOLE CPD 40MG [Concomitant]
     Indication: Product used for unknown indication
     Dosage: OMEPRAZOLE CPD 40MG
  14. GABAPENTIN TAB 800MG [Concomitant]
     Indication: Product used for unknown indication
     Dosage: GABAPENTIN TAB 800MG
  15. CHOLECAL DF TAB 1-3800MG [Concomitant]
     Indication: Product used for unknown indication
     Dosage: CHOLECAL DF TAB 1-3800MG
  16. JANUVIA TAB 25MG [Concomitant]
     Indication: Product used for unknown indication
     Dosage: JANUVIA TAB 25MG
  17. FUROSEMIDE TAB 80MG [Concomitant]
     Indication: Product used for unknown indication
     Dosage: FUROSEMIDE TAB 80MG

REACTIONS (2)
  - Joint swelling [Unknown]
  - Prostatic disorder [Unknown]
